FAERS Safety Report 6793847-8 (Version None)
Quarter: 2010Q2

REPORT INFORMATION
  Report Type: 
  Country: None (occurrence: None)
  Receive Date: 20100624
  Receipt Date: 20090323
  Transmission Date: 20101027
  Serious: No
  Sender: FDA-Public Use
  Company Number: US-PFIZER INC-2009166313

PATIENT
  Age: 30 Year
  Sex: Female
  Weight: 90.7 kg

DRUGS (1)
  1. DEPO-PROVERA [Suspect]
     Indication: CONTRACEPTION
     Dates: end: 20080101

REACTIONS (5)
  - BODY HEIGHT DECREASED [None]
  - BONE DENSITY DECREASED [None]
  - MINERAL METABOLISM DISORDER [None]
  - PROGESTERONE DECREASED [None]
  - TOOTH DISORDER [None]
